FAERS Safety Report 21154859 (Version 1)
Quarter: 2022Q3

REPORT INFORMATION
  Report Type: Spontaneous
  Country: US (occurrence: None)
  Receive Date: 20220730
  Receipt Date: 20220730
  Transmission Date: 20221027
  Serious: Yes (Other)
  Sender: FDA-Public Use
  Company Number: None

PATIENT
  Age: 69 Year
  Sex: Male
  Weight: 81 kg

DRUGS (7)
  1. PAXLOVID [Suspect]
     Active Substance: NIRMATRELVIR\RITONAVIR
     Indication: SARS-CoV-2 test positive
     Dosage: OTHER QUANTITY : 3 TABLET(S);?FREQUENCY : EVERY 12 HOURS;?
     Route: 048
     Dates: start: 20220727, end: 20220727
  2. LOVASTATIN [Concomitant]
     Active Substance: LOVASTATIN
  3. VITAMIN D [Concomitant]
     Active Substance: VITAMIN D NOS
  4. GLUCOSAMINE [Concomitant]
     Active Substance: GLUCOSAMINE
  5. CHONDROITIN [Concomitant]
     Active Substance: CHONDROITIN
  6. multi-vitamin [Concomitant]
  7. MELATONIN [Concomitant]
     Active Substance: MELATONIN

REACTIONS (6)
  - Abdominal pain [None]
  - Taste disorder [None]
  - Nausea [None]
  - Diarrhoea [None]
  - Oropharyngeal pain [None]
  - Therapy cessation [None]

NARRATIVE: CASE EVENT DATE: 20220728
